FAERS Safety Report 6161609-0 (Version None)
Quarter: 2009Q2

REPORT INFORMATION
  Report Type: 
  Country: None (occurrence: None)
  Receive Date: 20090421
  Receipt Date: 20090324
  Transmission Date: 20091009
  Serious: No
  Sender: FDA-Public Use
  Company Number: US-BAYER-200910954BCC

PATIENT
  Age: 49 Year
  Sex: Female
  Weight: 68 kg

DRUGS (2)
  1. ALEVE [Suspect]
     Dosage: BOTTLE COUNT 50 + 50% BONUS; TAKING AS PRESCRIBED
     Dates: start: 20090301
  2. ANTIBIOTIC [Concomitant]
     Dates: start: 20090323

REACTIONS (2)
  - HYPERSENSITIVITY [None]
  - NASAL CONGESTION [None]
